FAERS Safety Report 6395886-8 (Version None)
Quarter: 2009Q4

REPORT INFORMATION
  Report Type: 
  Country: None (occurrence: None)
  Receive Date: 20091009
  Receipt Date: 20090810
  Transmission Date: 20100525
  Serious: No
  Sender: FDA-Public Use
  Company Number: A0801364A

PATIENT
  Age: 60 Year
  Sex: Female

DRUGS (3)
  1. TYKERB [Suspect]
     Indication: BREAST CANCER
     Dosage: 1250MG PER DAY
     Route: 048
     Dates: start: 20090301, end: 20090727
  2. XELODA [Concomitant]
  3. HERCEPTIN [Concomitant]

REACTIONS (3)
  - EJECTION FRACTION DECREASED [None]
  - FATIGUE [None]
  - OEDEMA PERIPHERAL [None]
